FAERS Safety Report 9242492 (Version 2)
Quarter: 2014Q3

REPORT INFORMATION
  Report Type: Report from Study
  Country: US (occurrence: US)
  Receive Date: 20130419
  Receipt Date: 20140810
  Transmission Date: 20150326
  Serious: Yes (Hospitalization, Other)
  Sender: FDA-Public Use
  Company Number: PHEH2013US008664

PATIENT
  Age: 61 Year
  Sex: Female
  Weight: 61.22 kg

DRUGS (9)
  1. GILENYA [Suspect]
     Active Substance: FINGOLIMOD HYDROCHLORIDE
     Indication: MULTIPLE SCLEROSIS
     Dosage: 0.5 MG, QD
     Route: 048
     Dates: start: 20130416, end: 20140416
  2. PROZAC [Concomitant]
     Active Substance: FLUOXETINE HYDROCHLORIDE
     Dosage: 40 MG, DAILY
     Route: 048
  3. LORAZEPAM. [Concomitant]
     Active Substance: LORAZEPAM
     Indication: ANXIETY
     Dosage: 2 MG, PRN
  4. VITAMIN D [Concomitant]
     Active Substance: CHOLECALCIFEROL
  5. ATIVAN [Concomitant]
     Active Substance: LORAZEPAM
     Indication: ANXIETY
     Dosage: 1 MG, UNK
     Dates: start: 20130416
  6. ADVAIR HFA [Concomitant]
     Active Substance: FLUTICASONE PROPIONATE\SALMETEROL XINAFOATE
     Dosage: 2 PUFFS (500/50) DAILY
     Route: 055
  7. ESTRACE [Concomitant]
     Active Substance: ESTRADIOL
     Dosage: 2 MG, TWICE WEEKLY
  8. XANAX [Concomitant]
     Active Substance: ALPRAZOLAM
     Dosage: 2 MG (1-2 MG), BED TIME
     Route: 048
  9. XOLAIR [Concomitant]
     Active Substance: OMALIZUMAB
     Indication: HYPERSENSITIVITY
     Dosage: ONCE A MONTH

REACTIONS (9)
  - Heart rate decreased [Recovered/Resolved]
  - Atrioventricular block second degree [Recovered/Resolved]
  - Heart rate irregular [Recovering/Resolving]
  - Electrocardiogram PR prolongation [Recovered/Resolved]
  - Headache [Unknown]
  - Palpitations [Recovering/Resolving]
  - Fatigue [Unknown]
  - Blood pressure increased [Recovered/Resolved]
  - Dyspnoea [Recovered/Resolved]

NARRATIVE: CASE EVENT DATE: 20130416
